FAERS Safety Report 5678093-3 (Version None)
Quarter: 2008Q1

REPORT INFORMATION
  Report Type: 
  Country: None (occurrence: None)
  Receive Date: 20080324
  Receipt Date: 20080324
  Transmission Date: 20080703
  Serious: Yes (Other)
  Sender: FDA-Public Use
  Company Number: None

PATIENT
  Age: 55 Year
  Sex: Female
  Weight: 68.0396 kg

DRUGS (1)
  1. ZETIA [Suspect]
     Indication: BLOOD CHOLESTEROL INCREASED
     Dates: start: 20020725, end: 20020725

REACTIONS (5)
  - DRUG INEFFECTIVE [None]
  - DYSPNOEA [None]
  - FIBROMYALGIA [None]
  - MUSCLE SPASMS [None]
  - MYALGIA [None]
